FAERS Safety Report 6165246-3 (Version None)
Quarter: 2009Q2

REPORT INFORMATION
  Report Type: 
  Country: None (occurrence: None)
  Receive Date: 20090421
  Receipt Date: 20090421
  Transmission Date: 20091009
  Serious: Yes (Life-Threatening, Other)
  Sender: FDA-Public Use
  Company Number: None

PATIENT
  Age: 64 Year
  Sex: Male
  Weight: 90.7194 kg

DRUGS (1)
  1. DIGOXIN [Suspect]
     Indication: ARRHYTHMIA
     Dosage: 0.125 2 TIMES DAILY PO
     Route: 048
     Dates: start: 20090120, end: 20090401

REACTIONS (6)
  - CHEST DISCOMFORT [None]
  - CONDUCTION DISORDER [None]
  - DYSPEPSIA [None]
  - NIGHT SWEATS [None]
  - PALPITATIONS [None]
  - PRODUCT QUALITY ISSUE [None]
